FAERS Safety Report 7584289-6 (Version None)
Quarter: 2011Q2

REPORT INFORMATION
  Report Type: 
  Country: None (occurrence: None)
  Receive Date: 20110630
  Receipt Date: 20110621
  Transmission Date: 20111010
  Serious: Yes (Other)
  Sender: FDA-Public Use
  Company Number: PHHY2011HK57186

PATIENT
  Age: 80 Year
  Sex: Female

DRUGS (3)
  1. NICERGOLINE [Concomitant]
     Indication: DEMENTIA
     Dosage: 20 MG, DAILY
  2. DILTIAZEM [Interacting]
     Indication: HYPERTENSION
     Dosage: 60 MG, BID
  3. SIMVASTATIN [Suspect]
     Indication: TYPE IIA HYPERLIPIDAEMIA
     Dosage: 40 MG, DAILY

REACTIONS (4)
  - RENAL IMPAIRMENT [None]
  - DRUG INTERACTION [None]
  - MUSCULAR WEAKNESS [None]
  - MYOPATHY [None]
